FAERS Safety Report 6674236-3 (Version None)
Quarter: 2010Q2

REPORT INFORMATION
  Report Type: 
  Country: None (occurrence: None)
  Receive Date: 20100409
  Receipt Date: 20100330
  Transmission Date: 20101027
  Serious: Yes (Hospitalization, Other)
  Sender: FDA-Public Use
  Company Number: US-GENZYME-CLOF-1000913

PATIENT
  Sex: Female
  Weight: 126.3 kg

DRUGS (2)
  1. CLOLAR [Suspect]
     Indication: ACUTE MYELOID LEUKAEMIA
     Dosage: 10 MG/M2, QDX5
     Route: 042
     Dates: start: 20100223, end: 20100227
  2. GEMTUZUMAB OZOGAMICIN [Suspect]
     Indication: ACUTE MYELOID LEUKAEMIA
     Dosage: 3 MG/M2, DAYS 1,4,7
     Route: 042
     Dates: start: 20100223, end: 20100301

REACTIONS (6)
  - CHOLECYSTITIS ACUTE [None]
  - FUNGAL INFECTION [None]
  - INFECTION [None]
  - MENTAL STATUS CHANGES [None]
  - RENAL FAILURE ACUTE [None]
  - SEPSIS [None]
